FAERS Safety Report 20800550 (Version 1)
Quarter: 2022Q2

REPORT INFORMATION
  Report Type: Spontaneous
  Country: DE (occurrence: DE)
  Receive Date: 20220509
  Receipt Date: 20220509
  Transmission Date: 20220721
  Serious: Yes (Hospitalization, Other)
  Sender: FDA-Public Use
  Company Number: DE-SA-2017SA226992

PATIENT
  Sex: Female

DRUGS (36)
  1. QUETIAPINE [Suspect]
     Active Substance: QUETIAPINE
     Indication: Bipolar disorder
     Dosage: 50-0-0-100MG
  2. QUETIAPINE [Suspect]
     Active Substance: QUETIAPINE
     Dosage: 50-100 MG, DAILY
     Dates: start: 201310
  3. QUETIAPINE [Suspect]
     Active Substance: QUETIAPINE
     Dosage: UNK UNK, UNK
  4. QUETIAPINE [Suspect]
     Active Substance: QUETIAPINE
     Dosage: UNK UNK, UNK
  5. QUETIAPINE [Suspect]
     Active Substance: QUETIAPINE
     Dosage: 200 MG
  6. QUETIAPINE [Suspect]
     Active Substance: QUETIAPINE
     Dosage: 50 ? 200 MG DAILY
  7. VALPROIC ACID [Suspect]
     Active Substance: VALPROIC ACID
     Indication: Bipolar disorder
     Dosage: 2300 MG, QD
     Route: 065
     Dates: start: 20140222, end: 20140714
  8. VALPROIC ACID [Suspect]
     Active Substance: VALPROIC ACID
     Dosage: 1300 ? 2500 MG DAILY
     Route: 048
  9. VALPROIC ACID [Suspect]
     Active Substance: VALPROIC ACID
     Dosage: UNK UNK, UNK
     Route: 048
  10. VALPROIC ACID [Suspect]
     Active Substance: VALPROIC ACID
     Dosage: 1800 MG, QD
     Route: 065
     Dates: start: 201310
  11. VALPROIC ACID [Suspect]
     Active Substance: VALPROIC ACID
     Dosage: 1000 ? 0 - 1000
     Dates: start: 20140520, end: 20140524
  12. VALPROIC ACID [Suspect]
     Active Substance: VALPROIC ACID
     Dosage: UNK UNK, UNK
     Route: 048
  13. VALPROATE SODIUM [Suspect]
     Active Substance: VALPROATE SODIUM
     Indication: Bipolar disorder
     Dosage: 300-0-0-1000 MG
  14. VALPROATE SODIUM [Suspect]
     Active Substance: VALPROATE SODIUM
     Dosage: 1000 ? 0 ? 0 - 1300
     Dates: start: 20140221
  15. VALPROATE SODIUM [Suspect]
     Active Substance: VALPROATE SODIUM
     Dosage: 1800 MG, QD
     Route: 048
     Dates: start: 201310
  16. VALPROATE SODIUM [Suspect]
     Active Substance: VALPROATE SODIUM
     Dosage: 2000 MG, QD
     Dates: start: 20140627, end: 20140715
  17. VALPROATE SODIUM [Suspect]
     Active Substance: VALPROATE SODIUM
     Dosage: UNK UNK,QD
     Route: 048
  18. VALPROIC ACID [Suspect]
     Active Substance: VALPROIC ACID
     Indication: Bipolar disorder
     Dosage: UNK UNK, QD
     Route: 048
  19. VALPROIC ACID [Suspect]
     Active Substance: VALPROIC ACID
     Dosage: 2300 MG, QD
     Dates: start: 20131206, end: 20140221
  20. VALPROIC ACID [Suspect]
     Active Substance: VALPROIC ACID
     Dosage: 2300 MG
     Dates: start: 20140715, end: 20140725
  21. LITHIUM [Suspect]
     Active Substance: LITHIUM
     Indication: Bipolar disorder
     Dosage: 450 - 0 - 0 - 675 MG
  22. LITHIUM [Suspect]
     Active Substance: LITHIUM
     Dosage: UNK UNK, UNK
  23. LITHIUM [Suspect]
     Active Substance: LITHIUM
     Dosage: UNK UNK, UNK
  24. LITHIUM [Suspect]
     Active Substance: LITHIUM
     Dosage: 900 ? 2250 MG DAILY
     Route: 048
  25. LITHIUM [Suspect]
     Active Substance: LITHIUM
     Dosage: LOW DOSE
  26. MIRTAZAPINE [Concomitant]
     Active Substance: MIRTAZAPINE
     Indication: Product used for unknown indication
     Dosage: 30 MG, QD
  27. MIRTAZAPINE [Concomitant]
     Active Substance: MIRTAZAPINE
     Dosage: 0-0-0-15MG
  28. PANTOPRAZOLE [Concomitant]
     Active Substance: PANTOPRAZOLE
     Indication: Product used for unknown indication
     Dosage: 40 MG, QD
  29. LAMOTRIGINE [Concomitant]
     Active Substance: LAMOTRIGINE
     Indication: Product used for unknown indication
     Dosage: 100 MG, QD
  30. CITALOPRAM [Concomitant]
     Active Substance: CITALOPRAM HYDROBROMIDE
     Indication: Product used for unknown indication
     Dosage: 20 MG, QD
  31. LEVOTHYROXINE SODIUM [Concomitant]
     Active Substance: LEVOTHYROXINE SODIUM
     Indication: Product used for unknown indication
     Dosage: 75 UG, QD
     Route: 065
  32. ARIPIPRAZOLE [Concomitant]
     Active Substance: ARIPIPRAZOLE
     Indication: Product used for unknown indication
     Dosage: 5 MG, QD
  33. INSULIN HUMAN [Concomitant]
     Active Substance: INSULIN HUMAN
     Indication: Gestational diabetes
     Dosage: 6 IU, QD
     Route: 058
     Dates: start: 2014
  34. AMLODIPINE [Concomitant]
     Active Substance: AMLODIPINE BESYLATE
     Indication: Product used for unknown indication
     Dosage: 1-0-0-1 MG
  35. AMLODIPINE [Concomitant]
     Active Substance: AMLODIPINE BESYLATE
     Dosage: 5 MG, QD
  36. NOVORAPID [Concomitant]
     Active Substance: INSULIN ASPART
     Indication: Gestational diabetes
     Dosage: 5.5 IU, THROUGHOUT THE DAY
     Route: 058
     Dates: start: 2014

REACTIONS (27)
  - Hypertension [Unknown]
  - Bipolar I disorder [Unknown]
  - Polyhydramnios [Unknown]
  - Bipolar I disorder [Unknown]
  - Bipolar disorder [Unknown]
  - Gestational diabetes [Unknown]
  - Hypothyroidism [Unknown]
  - Exposure during pregnancy [Unknown]
  - Frequent bowel movements [Recovered/Resolved]
  - Abdominal pain [Recovered/Resolved]
  - Tremor [Unknown]
  - Gastric disorder [Unknown]
  - Obesity [Unknown]
  - Abdominal pain [Recovered/Resolved]
  - Abdominal distension [Unknown]
  - Sciatica [Unknown]
  - Mania [Unknown]
  - Tremor [Unknown]
  - Abdominal distension [Recovered/Resolved]
  - Blood glucose fluctuation [Unknown]
  - Sedation [Unknown]
  - Blood glucose increased [Unknown]
  - Weight increased [Unknown]
  - Weight increased [Unknown]
  - Diarrhoea [Unknown]
  - Constipation [Unknown]
  - Adverse drug reaction [Unknown]

NARRATIVE: CASE EVENT DATE: 20130101
